FAERS Safety Report 23432692 (Version 1)
Quarter: 2024Q1

REPORT INFORMATION
  Report Type: Spontaneous
  Country: GB (occurrence: GB)
  Receive Date: 20240123
  Receipt Date: 20240123
  Transmission Date: 20240409
  Serious: Yes (Death, Hospitalization, Other)
  Sender: FDA-Public Use
  Company Number: GB-MYLANLABS-2019M1117808_DUP

PATIENT
  Age: 59 Year
  Sex: Male
  Weight: 62 kg

DRUGS (8)
  1. CHLORPROMAZINE [Suspect]
     Active Substance: CHLORPROMAZINE
     Indication: Schizophrenia
     Dosage: 75 MG, UNKNOWN;
     Route: 065
  2. OLANZAPINE [Suspect]
     Active Substance: OLANZAPINE
     Indication: Schizophrenia
     Dosage: 120 MG
     Route: 065
  3. OLANZAPINE [Suspect]
     Active Substance: OLANZAPINE
     Indication: Schizophrenia
     Dosage: 120 MG
     Route: 065
  4. OLANZAPINE [Suspect]
     Active Substance: OLANZAPINE
     Dates: start: 20080823
  5. OLANZAPINE [Suspect]
     Active Substance: OLANZAPINE
     Dates: start: 20040217
  6. OLANZAPINE [Suspect]
     Active Substance: OLANZAPINE
     Dates: start: 20060704
  7. OLANZAPINE [Suspect]
     Active Substance: OLANZAPINE
  8. OLANZAPINE [Suspect]
     Active Substance: OLANZAPINE

REACTIONS (26)
  - Mucosal inflammation [Fatal]
  - Alopecia [Fatal]
  - Fatigue [Fatal]
  - Neuropathy peripheral [Fatal]
  - Diarrhoea [Fatal]
  - Cellulitis [Fatal]
  - Dyspepsia [Fatal]
  - Rhinalgia [Fatal]
  - Off label use [Fatal]
  - Disease progression [Fatal]
  - COVID-19 [Fatal]
  - Incorrect dose administered [Fatal]
  - Seizure [Fatal]
  - Fatigue [Not Recovered/Not Resolved]
  - Hallucination, auditory [Unknown]
  - Delusion of grandeur [Unknown]
  - Extrapyramidal disorder [Unknown]
  - Affective disorder [Recovered/Resolved]
  - Schizophrenia [Not Recovered/Not Resolved]
  - Psychotic disorder [Recovered/Resolved]
  - Leukopenia [Recovered/Resolved with Sequelae]
  - Platelet count decreased [Recovered/Resolved]
  - Lymphocyte count decreased [Unknown]
  - Neutropenia [Recovered/Resolved]
  - Neutrophil count increased [Unknown]
  - Nausea [Fatal]

NARRATIVE: CASE EVENT DATE: 20151101
